FAERS Safety Report 4910148-0 (Version None)
Quarter: 2006Q1

REPORT INFORMATION
  Report Type: 
  Country: None (occurrence: None)
  Receive Date: 20060209
  Receipt Date: 20060127
  Transmission Date: 20060701
  Serious: Yes (Death)
  Sender: FDA-Public Use
  Company Number: L05-USA-03935-23

PATIENT
  Age: 36 Year

DRUGS (3)
  1. DILTIAZEM HCL [Suspect]
  2. METOPROLOL [Suspect]
  3. CLONIDINE [Suspect]

REACTIONS (3)
  - CARDIAC ARREST [None]
  - COMPLETED SUICIDE [None]
  - RESPIRATORY ARREST [None]
